FAERS Safety Report 5370333-3 (Version None)
Quarter: 2007Q2

REPORT INFORMATION
  Report Type: 
  Country: None (occurrence: None)
  Receive Date: 20070626
  Receipt Date: 20061112
  Transmission Date: 20071010
  Serious: No
  Sender: FDA-Public Use
  Company Number: US-AMGEN-KDL198639

PATIENT
  Sex: Male

DRUGS (8)
  1. ARANESP [Suspect]
     Indication: RENAL FAILURE CHRONIC
     Dates: start: 20061027, end: 20061028
  2. METOPROLOL SUCCINATE [Concomitant]
  3. DILTIAZEM [Concomitant]
  4. LOVASTATIN [Concomitant]
  5. ISOSORBIDE DINITRATE [Concomitant]
  6. FOLIC ACID [Concomitant]
  7. SLOW-FE [Concomitant]
  8. PHOSLO [Concomitant]

REACTIONS (4)
  - ANURIA [None]
  - FATIGUE [None]
  - INFLUENZA LIKE ILLNESS [None]
  - URINE OUTPUT DECREASED [None]
